FAERS Safety Report 7636728-X (Version None)
Quarter: 2011Q3

REPORT INFORMATION
  Report Type: 
  Country: None (occurrence: None)
  Receive Date: 20110726
  Receipt Date: 20110718
  Transmission Date: 20111222
  Serious: Yes (Other)
  Sender: FDA-Public Use
  Company Number: US-ASTRAZENECA-2008UW26770

PATIENT
  Age: 471 Month
  Sex: Female
  Weight: 123.8 kg

DRUGS (10)
  1. SEROQUEL [Suspect]
     Indication: BIPOLAR DISORDER
     Route: 048
     Dates: start: 20030101, end: 20041001
  2. ABILIFY [Concomitant]
     Dates: start: 20030101, end: 20080101
  3. RISPERDAL [Concomitant]
     Dosage: 10 MG TWO AT NIGHT
     Dates: start: 20050101, end: 20060101
  4. CELEXA [Concomitant]
     Dosage: 20 OD # 30
     Dates: start: 20040217
  5. RISPERDAL [Concomitant]
     Dosage: 3 QHS # 30
     Dates: start: 20040217
  6. VERAPAMIL [Concomitant]
     Dates: start: 20040217
  7. TRAZODONE HCL [Concomitant]
     Dosage: 100 QHS # 60
     Dates: start: 20040217
  8. CLONIDINE [Concomitant]
     Dates: start: 20040217
  9. SEROQUEL [Suspect]
     Indication: SCHIZOPHRENIA
     Route: 048
     Dates: start: 20030101, end: 20041001
  10. WELLBUTRIN [Concomitant]
     Dosage: 150 BID # 60
     Dates: start: 20040217

REACTIONS (3)
  - METABOLIC DISORDER [None]
  - TYPE 2 DIABETES MELLITUS [None]
  - WEIGHT INCREASED [None]
